FAERS Safety Report 15468691 (Version 1)
Quarter: 2018Q4

REPORT INFORMATION
  Report Type: Spontaneous
  Country: US (occurrence: US)
  Receive Date: 20181003
  Receipt Date: 20181003
  Transmission Date: 20190204
  Serious: No
  Sender: FDA-Public Use
  Company Number: None

PATIENT
  Age: 78 Year
  Sex: Male

DRUGS (1)
  1. REPATHA [Suspect]
     Active Substance: EVOLOCUMAB
     Dates: start: 20180925, end: 20181001

REACTIONS (3)
  - Oropharyngeal pain [None]
  - Nasopharyngitis [None]
  - Cough [None]

NARRATIVE: CASE EVENT DATE: 20181001
